FAERS Safety Report 7927858-3 (Version None)
Quarter: 2011Q4

REPORT INFORMATION
  Report Type: 
  Country: None (occurrence: None)
  Receive Date: 20111118
  Receipt Date: 20111118
  Transmission Date: 20120403
  Serious: No
  Sender: FDA-Public Use
  Company Number: None

PATIENT
  Age: 45 Year
  Sex: Female
  Weight: 68.946 kg

DRUGS (1)
  1. METRONIDAZOLE [Suspect]
     Indication: LYME DISEASE
     Dosage: 500 MG TABLET
     Route: 048
     Dates: start: 20110605, end: 20110906

REACTIONS (3)
  - HYPOAESTHESIA [None]
  - PARAESTHESIA [None]
  - PAIN IN EXTREMITY [None]
